FAERS Safety Report 5210031-X (Version None)
Quarter: 2006Q4

REPORT INFORMATION
  Report Type: 
  Country: None (occurrence: None)
  Receive Date: 20061127
  Receipt Date: 20060808
  Transmission Date: 20070319
  Serious: Yes (Other)
  Sender: FDA-Public Use
  Company Number: CHPA2006US07965

PATIENT
  Age: 55 Year
  Sex: Female
  Weight: 83.4 kg

DRUGS (3)
  1. NICOTINE [Suspect]
     Indication: SMOKING CESSATION THERAPY
     Dosage: 14 MG, QD, TRANSDERMAL
     Route: 062
     Dates: start: 20060801, end: 20060808
  2. THYROID PREPARATIONS (NO INGREDIENTS/SUBSTANCES) [Concomitant]
  3. ANTIDEPRESSANTS (NO INGREDIENTS/SUBSTANCES) [Concomitant]

REACTIONS (3)
  - DISTURBANCE IN ATTENTION [None]
  - TREATMENT NONCOMPLIANCE [None]
  - UNDERDOSE [None]
